FAERS Safety Report 7647009-2 (Version None)
Quarter: 2011Q3

REPORT INFORMATION
  Report Type: 
  Country: None (occurrence: None)
  Receive Date: 20110801
  Receipt Date: 20110722
  Transmission Date: 20111222
  Serious: Yes (Other)
  Sender: FDA-Public Use
  Company Number: IN-PFIZER INC-2011168377

PATIENT
  Age: 30 Year
  Sex: Female

DRUGS (2)
  1. SIROLIMUS [Suspect]
     Dosage: 0.5 MG, UNK
  2. SIROLIMUS [Suspect]
     Indication: TRANSPLANT REJECTION
     Dosage: 1 MG, OD

REACTIONS (1)
  - POLYCYTHAEMIA [None]
